FAERS Safety Report 10234036 (Version 1)
Quarter: 2014Q2

REPORT INFORMATION
  Report Type: Spontaneous
  Country: ZA (occurrence: ZA)
  Receive Date: 20140612
  Receipt Date: 20140612
  Transmission Date: 20141212
  Serious: Yes (Death)
  Sender: FDA-Public Use
  Company Number: ZA-SA-2014SA073942

PATIENT
  Age: 66 Year
  Sex: Male

DRUGS (1)
  1. RENAGEL [Suspect]
     Indication: VASCULAR CALCIFICATION
     Dosage: 800 MG TDS
     Route: 048

REACTIONS (2)
  - Organ failure [Fatal]
  - Off label use [Unknown]
